FAERS Safety Report 9974023 (Version 1)
Quarter: 2014Q1

REPORT INFORMATION
  Report Type: Spontaneous
  Country: US (occurrence: US)
  Receive Date: 20140306
  Receipt Date: 20140306
  Transmission Date: 20141002
  Serious: No
  Sender: FDA-Public Use
  Company Number: US-ABBVIE-13P-163-1155143-00

PATIENT
  Age: 57 Year
  Sex: Female
  Weight: 104.42 kg

DRUGS (4)
  1. HUMIRA [Suspect]
     Indication: RHEUMATOID ARTHRITIS
     Dates: start: 20130916
  2. CYMBALTA [Concomitant]
     Indication: FIBROMYALGIA
  3. CELEBREX [Concomitant]
     Indication: OSTEOARTHRITIS
  4. INSULIN GLARGINE [Concomitant]
     Indication: DIABETES MELLITUS

REACTIONS (4)
  - Dizziness [Not Recovered/Not Resolved]
  - Myalgia [Not Recovered/Not Resolved]
  - Nasopharyngitis [Recovered/Resolved]
  - Vomiting [Not Recovered/Not Resolved]
